FAERS Safety Report 11652425 (Version 2)
Quarter: 2016Q2

REPORT INFORMATION
  Report Type: Report from Study
  Country: US (occurrence: US)
  Receive Date: 20151022
  Receipt Date: 20160407
  Transmission Date: 20160815
  Serious: Yes (Congenital Anomaly, Other)
  Sender: FDA-Public Use
  Company Number: US-TEVA-509425USA

PATIENT
  Age: 0 Year
  Sex: Male
  Weight: 8 kg

DRUGS (11)
  1. FISH OIL [Concomitant]
     Active Substance: FISH OIL
     Dosage: 600 MILLIGRAM DAILY;
  2. PROVIGIL [Suspect]
     Active Substance: MODAFINIL
     Indication: NARCOLEPSY
     Dosage: 100 MILLIGRAM DAILY;
     Dates: start: 2000
  3. PROVIGIL [Suspect]
     Active Substance: MODAFINIL
     Dosage: 50 MILLIGRAM DAILY;
  4. FOLIC ACID. [Concomitant]
     Active Substance: FOLIC ACID
  5. AMBIEN [Concomitant]
     Active Substance: ZOLPIDEM TARTRATE
  6. LASIX [Concomitant]
     Active Substance: FUROSEMIDE
  7. BUSPAR [Concomitant]
     Active Substance: BUSPIRONE HYDROCHLORIDE
     Indication: ANXIETY
     Dosage: 30 MILLIGRAM DAILY;
     Dates: start: 1995
  8. PRENATAL VITAMINS [Concomitant]
     Active Substance: VITAMINS
     Indication: PREGNANCY
     Dates: start: 2013
  9. PROVIGIL [Suspect]
     Active Substance: MODAFINIL
     Indication: SLEEP DISORDER
     Dosage: 100 MILLIGRAM DAILY;
     Dates: start: 1999
  10. LEVOTHYROXINE. [Concomitant]
     Active Substance: LEVOTHYROXINE
     Indication: HYPOTHYROIDISM
     Dosage: 25 MICROGRAM DAILY;
  11. SYNTHROID [Concomitant]
     Active Substance: LEVOTHYROXINE SODIUM
     Dosage: TAKE TWO 25 MCQ TABS DAILY BY MOUTH X 3 DAYS FOLLOWED BY 1.5 TABS DAILY AFTER THAT
     Route: 048

REACTIONS (15)
  - Failure to thrive [Unknown]
  - Milk soy protein intolerance [Unknown]
  - Erythema toxicum neonatorum [Unknown]
  - Congenital hypothyroidism [Unknown]
  - Ventricular septal defect [Unknown]
  - Nausea [Unknown]
  - Constipation [Unknown]
  - Cardiac failure congestive [Unknown]
  - Respiratory distress [Unknown]
  - Selective eating disorder [Unknown]
  - Small for dates baby [Unknown]
  - Acne [Unknown]
  - Vomiting [Unknown]
  - Cough [Unknown]
  - Live birth [Unknown]

NARRATIVE: CASE EVENT DATE: 2015
